FAERS Safety Report 8459947 (Version 2)
Quarter: 2012Q4

REPORT INFORMATION
  Report Type: 
  Country: US (occurrence: US)
  Receive Date: 20120314
  Receipt Date: 20121024
  Transmission Date: 20130627
  Serious: No
  Sender: FDA-Public Use
  Company Number: US-ASTRAZENECA-2012SE00585

PATIENT
  Age: 63 Year
  Sex: Female

DRUGS (7)
  1. TOPROL XL [Suspect]
     Route: 048
  2. SEROQUEL [Suspect]
     Route: 048
  3. CRESTOR [Concomitant]
  4. DEPAKOTE [Concomitant]
  5. HYDROCODONE APAP [Concomitant]
  6. BLOOD PRESSURE PILLS [Concomitant]
     Indication: BLOOD PRESSURE ABNORMAL
  7. HYDROCODINE [Concomitant]

REACTIONS (4)
  - Fall [Recovered/Resolved]
  - Adverse drug reaction [Recovered/Resolved]
  - Blood glucose increased [Recovered/Resolved]
  - Dizziness [Recovered/Resolved]
